FAERS Safety Report 10037162 (Version 1)
Quarter: 2014Q1

REPORT INFORMATION
  Report Type: Spontaneous
  Country: KR (occurrence: KR)
  Receive Date: 20140326
  Receipt Date: 20140326
  Transmission Date: 20141002
  Serious: Yes (Other)
  Sender: FDA-Public Use
  Company Number: KR-JNJFOC-20140307405

PATIENT
  Sex: 0

DRUGS (2)
  1. ACETAMINOPHEN [Suspect]
     Indication: ALLERGY TEST
     Dosage: DOSE-ESCALATING SCHEDULE: 300 MG (OR 325 MG), 600 MG (OR 650 MG), AND 900 MG (OR 975 MG).
     Route: 048
     Dates: start: 200311, end: 201111
  2. CELECOXIB [Suspect]
     Indication: ALLERGY TEST
     Dosage: DOSE-ESCALATING SCHEDULE WAS AS FOLLOWS:??100 AND 200 MG.
     Route: 048
     Dates: start: 200311, end: 201111

REACTIONS (2)
  - Drug hypersensitivity [Unknown]
  - Off label use [Unknown]
